FAERS Safety Report 6326895-2 (Version None)
Quarter: 2009Q3

REPORT INFORMATION
  Report Type: 
  Country: None (occurrence: None)
  Receive Date: 20090821
  Receipt Date: 20090813
  Transmission Date: 20100115
  Serious: Yes (Hospitalization)
  Sender: FDA-Public Use
  Company Number: 2009-03235

PATIENT
  Age: 72 Year
  Sex: Female
  Weight: 61 kg

DRUGS (4)
  1. VELCADE [Suspect]
     Indication: PLASMACYTOMA
     Dosage: 2.2 MG, INTRAVENOUS
     Route: 042
     Dates: start: 20090605, end: 20090609
  2. TILIDINE HYDROCHLORIDE (TILIDINE HYDROCHLORIDE) [Concomitant]
  3. ACYCLOVIR [Concomitant]
  4. VERAPAMIL HYDROCHLORIDE [Concomitant]

REACTIONS (2)
  - ATRIAL FIBRILLATION [None]
  - PUBIC RAMI FRACTURE [None]
